FAERS Safety Report 7087944-X (Version None)
Quarter: 2010Q4

REPORT INFORMATION
  Report Type: 
  Country: None (occurrence: None)
  Receive Date: 20101108
  Receipt Date: 20101025
  Transmission Date: 20110411
  Serious: Yes (Other)
  Sender: FDA-Public Use
  Company Number: KR-US-EMD SERONO, INC.-7010253

PATIENT
  Sex: Female

DRUGS (4)
  1. SAIZEN [Suspect]
     Indication: HYPOPITUITARISM
     Route: 058
     Dates: start: 20050616, end: 20060825
  2. SAIZEN [Suspect]
     Route: 058
     Dates: start: 20070507
  3. LEVOTHYROXINE [Concomitant]
     Indication: HYPOPITUITARISM
     Route: 048
     Dates: start: 20030404
  4. HYDROCORTISONE [Concomitant]
     Indication: HYPOPITUITARISM
     Route: 048
     Dates: start: 20030404

REACTIONS (1)
  - CONVULSION [None]
